FAERS Safety Report 4583024-3 (Version None)
Quarter: 2005Q1

REPORT INFORMATION
  Report Type: 
  Country: None (occurrence: None)
  Receive Date: 20050125
  Receipt Date: 20041013
  Transmission Date: 20050727
  Serious: No
  Sender: FDA-Public Use
  Company Number: USA040979437

PATIENT
  Age: 56 Year
  Sex: Female

DRUGS (2)
  1. FORTEO [Suspect]
     Indication: OSTEOPOROSIS PROPHYLAXIS
     Dates: start: 20040816
  2. CALCIUM GLUCONATE [Concomitant]

REACTIONS (5)
  - HEART RATE INCREASED [None]
  - NAUSEA [None]
  - PHAGOPHOBIA [None]
  - RETCHING [None]
  - VOMITING [None]
